FAERS Safety Report 20257539 (Version 1)
Quarter: 2021Q4

REPORT INFORMATION
  Report Type: Spontaneous
  Country: None (occurrence: US)
  Receive Date: 20211230
  Receipt Date: 20211230
  Transmission Date: 20220303
  Serious: No
  Sender: FDA-Public Use
  Company Number: US-Breckenridge Pharmaceutical, Inc.-2123503

PATIENT
  Sex: Female

DRUGS (1)
  1. TERBINAFINE HYDROCHLORIDE [Suspect]
     Active Substance: TERBINAFINE HYDROCHLORIDE
     Route: 048

REACTIONS (4)
  - Blister [Unknown]
  - Arthropathy [Unknown]
  - Peripheral swelling [Unknown]
  - Urticaria [Unknown]
